FAERS Safety Report 19630758 (Version 1)
Quarter: 2021Q3

REPORT INFORMATION
  Report Type: Other
  Country: US (occurrence: US)
  Receive Date: 20210729
  Receipt Date: 20210729
  Transmission Date: 20211014
  Serious: Yes (Other)
  Sender: FDA-Public Use
  Company Number: US-GLAUKOS-AVE-2021-0196-AE

PATIENT
  Age: 14 Year
  Sex: Male

DRUGS (4)
  1. TOBRAMYCIN. [Concomitant]
     Active Substance: TOBRAMYCIN
     Indication: PRODUCT USED FOR UNKNOWN INDICATION
     Dosage: 3 X DAILY
     Route: 047
  2. AVEDRO CROSS?LINKING PRODUCT(S), UNSPECIFIED [Suspect]
     Active Substance: RIBOFLAVIN 5^-PHOSPHATE SODIUM
     Indication: KERATOCONUS
     Route: 047
  3. DIFLUPREDNATE [Suspect]
     Active Substance: DIFLUPREDNATE
     Dosage: TAPER TO 2 X DAILY
     Route: 047
  4. DIFLUPREDNATE [Suspect]
     Active Substance: DIFLUPREDNATE
     Indication: CORNEAL OPACITY
     Dosage: 4 X DAILY
     Route: 047

REACTIONS (6)
  - Visual acuity reduced [Recovering/Resolving]
  - Eye pain [Recovered/Resolved]
  - Corneal opacity [Not Recovered/Not Resolved]
  - Impaired healing [Recovering/Resolving]
  - Infectious crystalline keratopathy [Recovered/Resolved]
  - Ocular hyperaemia [Recovered/Resolved]
